FAERS Safety Report 8316430-1 (Version None)
Quarter: 2012Q2

REPORT INFORMATION
  Report Type: 
  Country: None (occurrence: None)
  Receive Date: 20120424
  Receipt Date: 20120424
  Transmission Date: 20120825
  Serious: Yes (Other)
  Sender: FDA-Public Use
  Company Number: None

PATIENT
  Sex: Female
  Weight: 78.9259 kg

DRUGS (2)
  1. ACTIVELLA [Suspect]
     Indication: DYSMENORRHOEA
     Dosage: 1.0/0.5MG ONE PO Q.D. ORAL
     Route: 048
     Dates: start: 20080121
  2. ACTIVELLA [Suspect]
     Indication: MENORRHAGIA
     Dosage: 1.0/0.5MG ONE PO Q.D. ORAL
     Route: 048
     Dates: start: 20080121

REACTIONS (4)
  - PRODUCT SUBSTITUTION ISSUE [None]
  - DRUG DISPENSING ERROR [None]
  - WRONG DRUG ADMINISTERED [None]
  - HAEMORRHAGE [None]
